FAERS Safety Report 5442331-2 (Version None)
Quarter: 2007Q3

REPORT INFORMATION
  Report Type: 
  Country: None (occurrence: None)
  Receive Date: 20070904
  Receipt Date: 20070824
  Transmission Date: 20080115
  Serious: Yes (Hospitalization)
  Sender: FDA-Public Use
  Company Number: JP-PFIZER INC-2007071526

PATIENT
  Sex: Female
  Weight: 78 kg

DRUGS (5)
  1. SOLU-CORTEF [Suspect]
     Indication: ASTHMA
     Route: 042
  2. SOLU-MEDROL [Concomitant]
     Route: 042
  3. SOLDEM 3A [Concomitant]
     Route: 042
  4. NEOPHYLLIN [Concomitant]
     Route: 042
  5. MEPTIN [Concomitant]
     Route: 055

REACTIONS (1)
  - URTICARIA [None]
